FAERS Safety Report 13005922 (Version 1)
Quarter: 2016Q4

REPORT INFORMATION
  Report Type: Report from Study
  Country: EE (occurrence: EE)
  Receive Date: 20161207
  Receipt Date: 20161207
  Transmission Date: 20170207
  Serious: Yes (Death, Life-Threatening, Hospitalization, Other)
  Sender: FDA-Public Use
  Company Number: EE-TEVA-704751ACC

PATIENT
  Age: 70 Year
  Sex: Female

DRUGS (25)
  1. PLATELETS [Concomitant]
     Active Substance: HUMAN PLATELET, ALLOGENIC
     Indication: PRODUCT USED FOR UNKNOWN INDICATION
     Dosage: 1 DOSE, DAILY
     Route: 042
     Dates: start: 20160628, end: 20160630
  2. BENDAMUSTINE HYDROCHLORIDE. [Suspect]
     Active Substance: BENDAMUSTINE HYDROCHLORIDE
     Indication: DIFFUSE LARGE B-CELL LYMPHOMA
     Route: 042
     Dates: start: 20150226, end: 20150616
  3. RITUXIMAB [Suspect]
     Active Substance: RITUXIMAB
     Indication: DIFFUSE LARGE B-CELL LYMPHOMA
     Route: 065
     Dates: end: 20160722
  4. DOXYCYCLIN                         /00055701/ [Concomitant]
     Active Substance: DOXYCYCLINE
     Indication: PRODUCT USED FOR UNKNOWN INDICATION
     Dosage: 200 MILLIGRAM DAILY;
     Route: 048
     Dates: start: 20140829, end: 20140907
  5. TRANEXAMIC ACID. [Concomitant]
     Active Substance: TRANEXAMIC ACID
     Indication: PRODUCT USED FOR UNKNOWN INDICATION
     Dosage: 1500 MILLIGRAM DAILY;
     Route: 048
     Dates: start: 20160628
  6. DOXORUBICIN [Suspect]
     Active Substance: DOXORUBICIN
     Indication: DIFFUSE LARGE B-CELL LYMPHOMA
     Dosage: 80 MG, CYCLIC (1 IN 21 DAYS)
     Route: 042
     Dates: end: 20160722
  7. OBINUTUZUMAB [Suspect]
     Active Substance: OBINUTUZUMAB
     Dosage: 1000 MG, CYCLIC (C1D8)
     Route: 042
     Dates: start: 20140609, end: 20140609
  8. OBINUTUZUMAB [Suspect]
     Active Substance: OBINUTUZUMAB
     Dosage: 1000 MG, CYCLIC (C1D1)
     Route: 042
     Dates: start: 20140702, end: 20140702
  9. VINCRISTINE [Suspect]
     Active Substance: VINCRISTINE
     Indication: DIFFUSE LARGE B-CELL LYMPHOMA
     Dosage: 1 MG, CYCLIC (1 IN 21 DAYS)
     Route: 042
     Dates: end: 20160722
  10. OBINUTUZUMAB [Suspect]
     Active Substance: OBINUTUZUMAB
     Indication: CHRONIC LYMPHOCYTIC LEUKAEMIA
     Dosage: 100 MG, CYCLIC (C1 D1)
     Route: 042
     Dates: start: 20140527, end: 20140527
  11. OBINUTUZUMAB [Suspect]
     Active Substance: OBINUTUZUMAB
     Dosage: 1000 MG, CYCLIC (C5D1)
     Route: 042
     Dates: start: 20140925, end: 20140925
  12. BETALOC                            /00376902/ [Concomitant]
     Active Substance: METOPROLOL TARTRATE
     Indication: PRODUCT USED FOR UNKNOWN INDICATION
     Route: 048
  13. RYTMONORM [Concomitant]
     Active Substance: PROPAFENONE
     Indication: PRODUCT USED FOR UNKNOWN INDICATION
     Dosage: 300 MILLIGRAM DAILY;
     Route: 048
     Dates: start: 20160519, end: 20160903
  14. OBINUTUZUMAB [Suspect]
     Active Substance: OBINUTUZUMAB
     Dosage: 1000 MG, CYCLIC (C1D15)
     Route: 042
     Dates: start: 20140616, end: 20140616
  15. VANCOMYCIN [Concomitant]
     Active Substance: VANCOMYCIN
     Indication: PRODUCT USED FOR UNKNOWN INDICATION
     Route: 042
  16. OBINUTUZUMAB [Suspect]
     Active Substance: OBINUTUZUMAB
     Dosage: 900 MG, CYCLIC (C1D2)
     Route: 042
     Dates: start: 20140528, end: 20140528
  17. OBINUTUZUMAB [Suspect]
     Active Substance: OBINUTUZUMAB
     Dosage: 1000 MG, CYCLIC (C3D1)
     Route: 042
     Dates: start: 20140804, end: 20140804
  18. CYCLOPHOSPHAMIDE. [Suspect]
     Active Substance: CYCLOPHOSPHAMIDE
     Indication: DIFFUSE LARGE B-CELL LYMPHOMA
     Dosage: 1300 MG, CYCLIC (1 IN 21 DAYS)
     Route: 042
     Dates: end: 20160722
  19. PREDNISOLONE. [Suspect]
     Active Substance: PREDNISOLONE
     Indication: DIFFUSE LARGE B-CELL LYMPHOMA
     Dosage: 50 MG, CYCLIC (5 DAYS DAILLY IN 21 DAY CYCLE)
     Route: 048
     Dates: end: 20160722
  20. PARACETAMOL [Concomitant]
     Active Substance: ACETAMINOPHEN
     Indication: PRODUCT USED FOR UNKNOWN INDICATION
     Dosage: 1000 MILLIGRAM DAILY;
     Route: 048
     Dates: start: 20140529, end: 20140529
  21. ACYCLOVIR                          /00587301/ [Concomitant]
     Active Substance: ACYCLOVIR
     Indication: PROPHYLAXIS
     Dosage: 2400 MILLIGRAM DAILY;
     Route: 048
     Dates: start: 20140512, end: 20140524
  22. ACYCLOVIR                          /00587301/ [Concomitant]
     Active Substance: ACYCLOVIR
     Dosage: 400 MILLIGRAM DAILY;
     Route: 048
     Dates: start: 20140616
  23. OBINUTUZUMAB [Suspect]
     Active Substance: OBINUTUZUMAB
     Dosage: 1000 MG, CYCLIC (C4D1)
     Route: 042
     Dates: start: 20140828, end: 20140828
  24. OBINUTUZUMAB [Suspect]
     Active Substance: OBINUTUZUMAB
     Dosage: 1000 MG, CYCLIC (C6D1)
     Route: 042
     Dates: start: 20141027, end: 20141027
  25. MAXIPIME [Concomitant]
     Active Substance: CEFEPIME HYDROCHLORIDE
     Indication: PRODUCT USED FOR UNKNOWN INDICATION
     Route: 042

REACTIONS (7)
  - General physical health deterioration [Unknown]
  - Richter^s syndrome [Fatal]
  - Enterococcal sepsis [Not Recovered/Not Resolved]
  - Pneumonia [Not Recovered/Not Resolved]
  - Pancytopenia [Unknown]
  - Diffuse large B-cell lymphoma [Fatal]
  - Pneumonia [Not Recovered/Not Resolved]

NARRATIVE: CASE EVENT DATE: 20160715
